FAERS Safety Report 5989013-6 (Version None)
Quarter: 2008Q4

REPORT INFORMATION
  Report Type: 
  Country: None (occurrence: None)
  Receive Date: 20081210
  Receipt Date: 20081208
  Transmission Date: 20090506
  Serious: Yes (Death, Life-Threatening)
  Sender: FDA-Public Use
  Company Number: B0502262A

PATIENT
  Age: 70 Year
  Sex: Female
  Weight: 53 kg

DRUGS (11)
  1. ALKERAN [Suspect]
     Indication: ALLOGENIC BONE MARROW TRANSPLANTATION THERAPY
     Dosage: 70MGM2 PER DAY
     Route: 042
     Dates: start: 20040910, end: 20040911
  2. TACROLIMUS [Suspect]
     Indication: IMMUNOSUPPRESSION
     Dosage: .03MGK PER DAY
     Route: 065
     Dates: start: 20040912, end: 20040927
  3. METHOTREXATE [Suspect]
     Indication: IMMUNOSUPPRESSION
     Dosage: 8MG PER DAY
     Route: 065
     Dates: start: 20040914, end: 20040920
  4. VANCOMYCIN HYDROCHLORIDE [Suspect]
  5. MEROPENEM TRIHYDRATE [Suspect]
     Route: 042
  6. FLUDARABINE PHOSPHATE [Concomitant]
     Indication: ALLOGENIC BONE MARROW TRANSPLANTATION THERAPY
     Dosage: 30MGM2 PER DAY
     Route: 042
     Dates: start: 20040907, end: 20040911
  7. GRAN [Concomitant]
     Dates: start: 20040916, end: 20040927
  8. FAMOTIDINE [Concomitant]
     Dosage: 40MG PER DAY
     Route: 048
     Dates: start: 20040901, end: 20040927
  9. CRAVIT [Concomitant]
     Dosage: 300MG PER DAY
     Route: 048
     Dates: start: 20040905, end: 20040927
  10. DIFLUCAN [Concomitant]
     Dosage: 200MG PER DAY
     Route: 048
     Dates: start: 20040901, end: 20040927
  11. ZOVIRAX [Concomitant]
     Dosage: 1000MG PER DAY
     Route: 048
     Dates: start: 20040911, end: 20040927

REACTIONS (2)
  - JAUNDICE [None]
  - SEPSIS [None]
